FAERS Safety Report 6240719-3 (Version None)
Quarter: 2009Q2

REPORT INFORMATION
  Report Type: 
  Country: None (occurrence: None)
  Receive Date: 20090623
  Receipt Date: 20090220
  Transmission Date: 20091009
  Serious: No
  Sender: FDA-Public Use
  Company Number: US-ASTRAZENECA-2009UW04804

PATIENT
  Age: 79 Year
  Sex: Female
  Weight: 65.8 kg

DRUGS (5)
  1. PULMICORT RESPULES [Suspect]
     Indication: CHRONIC OBSTRUCTIVE PULMONARY DISEASE
     Route: 055
     Dates: start: 20060101
  2. PULMICORT RESPULES [Suspect]
     Indication: PNEUMONIA
     Route: 055
     Dates: start: 20060101
  3. PRIMIDONE [Concomitant]
     Indication: TREMOR
  4. INDERAL [Concomitant]
     Indication: TREMOR
  5. ZOLOFT [Concomitant]
     Indication: DEPRESSION

REACTIONS (2)
  - FLATULENCE [None]
  - NAUSEA [None]
